FAERS Safety Report 6273347-4 (Version None)
Quarter: 2009Q3

REPORT INFORMATION
  Report Type: 
  Country: None (occurrence: None)
  Receive Date: 20090715
  Receipt Date: 20080630
  Transmission Date: 20100115
  Serious: Yes (Hospitalization, Other)
  Sender: FDA-Public Use
  Company Number: 2008US001545

PATIENT
  Age: 60 Year
  Sex: Male
  Weight: 67 kg

DRUGS (1)
  1. ADENOSCAN [Suspect]
     Indication: SCAN MYOCARDIAL PERFUSION
     Dosage: 9.4 MG, TOTAL DOSE, PARENTERAL
     Route: 051
     Dates: start: 20070621, end: 20070621

REACTIONS (6)
  - CHEST DISCOMFORT [None]
  - DYSPNOEA [None]
  - FLUSHING [None]
  - RESPIRATORY FAILURE [None]
  - SUPRAVENTRICULAR TACHYCARDIA [None]
  - TACHYCARDIA [None]
